FAERS Safety Report 14261983 (Version 2)
Quarter: 2018Q1

REPORT INFORMATION
  Report Type: Spontaneous
  Country: IT (occurrence: IT)
  Receive Date: 20171208
  Receipt Date: 20180130
  Transmission Date: 20180508
  Serious: Yes (Other)
  Sender: FDA-Public Use
  Company Number: IT-AUROBINDO-AUR-APL-2017-44852

PATIENT
  Age: 33 Year
  Sex: Male
  Weight: 100 kg

DRUGS (8)
  1. QUETIAPINE 200MG [Suspect]
     Active Substance: QUETIAPINE
     Indication: PRODUCT USED FOR UNKNOWN INDICATION
     Dosage: IN TOTAL
     Route: 048
     Dates: start: 20171112, end: 20171112
  2. LORAZEPAM 2.5MG TABLETS [Suspect]
     Active Substance: LORAZEPAM
     Indication: PRODUCT USED FOR UNKNOWN INDICATION
     Dosage: IN TOTAL
     Route: 048
     Dates: start: 20171112, end: 20171112
  3. LANSOPRAZOLO [Suspect]
     Active Substance: LANSOPRAZOLE
     Indication: PRODUCT USED FOR UNKNOWN INDICATION
     Dosage: IN TOTAL
     Route: 048
     Dates: start: 20171112, end: 20171112
  4. LORMETAZEPAM [Suspect]
     Active Substance: LORMETAZEPAM
     Indication: PRODUCT USED FOR UNKNOWN INDICATION
     Dosage: UNK ; IN TOTAL
     Route: 048
     Dates: start: 20171112, end: 20171112
  5. RISPERIDONE FILM-COATED TABLETS 2MG [Suspect]
     Active Substance: RISPERIDONE
     Indication: PRODUCT USED FOR UNKNOWN INDICATION
     Dosage: IN TOTAL
     Route: 048
     Dates: start: 20171112, end: 20171112
  6. ZUCLOPENTHIXOL DIHYDROCHLORIDE [Suspect]
     Active Substance: ZUCLOPENTHIXOL HYDROCHLORIDE
     Indication: PRODUCT USED FOR UNKNOWN INDICATION
     Dosage: IN TOTAL
     Route: 048
     Dates: start: 20171112, end: 20171112
  7. AKINETON [Suspect]
     Active Substance: BIPERIDEN HYDROCHLORIDE
     Indication: PRODUCT USED FOR UNKNOWN INDICATION
     Dosage: 40 MG, IN TOTAL
     Route: 048
     Dates: start: 20171112, end: 20171112
  8. HALDOL [Suspect]
     Active Substance: HALOPERIDOL
     Indication: PRODUCT USED FOR UNKNOWN INDICATION
     Dosage: IN TOTAL
     Route: 048
     Dates: start: 20171112, end: 20171112

REACTIONS (3)
  - Intentional self-injury [Unknown]
  - Intentional product misuse [Unknown]
  - Self-injurious ideation [Unknown]

NARRATIVE: CASE EVENT DATE: 20171112
